FAERS Safety Report 13928615 (Version 7)
Quarter: 2023Q1

REPORT INFORMATION
  Report Type: Spontaneous
  Country: JP (occurrence: JP)
  Receive Date: 20170901
  Receipt Date: 20230130
  Transmission Date: 20230418
  Serious: Yes (Death, Hospitalization, Other)
  Sender: FDA-Public Use
  Company Number: JP-MSD-M2017-07944

PATIENT
  Sex: Male
  Weight: 61 kg

DRUGS (3)
  1. KEYTRUDA [Suspect]
     Active Substance: PEMBROLIZUMAB
     Indication: Lung adenocarcinoma
     Dosage: 200 MG, EVERY 3 WEEKS
     Route: 041
     Dates: start: 20170405, end: 20170405
  2. KEYTRUDA [Suspect]
     Active Substance: PEMBROLIZUMAB
     Dosage: 200 MILLIGRAM, EVERY 3 WEEKS
     Route: 041
     Dates: start: 20170607, end: 20170725
  3. CARBAZOCHROME SODIUM SULFONATE [Concomitant]
     Active Substance: CARBAZOCHROME SODIUM SULFONATE
     Indication: Haemoptysis
     Dosage: UNK
     Route: 048

REACTIONS (5)
  - Immune-mediated enterocolitis [Recovering/Resolving]
  - Interstitial lung disease [Unknown]
  - Malignant neoplasm progression [Fatal]
  - Respiratory failure [Fatal]
  - Diarrhoea [Recovering/Resolving]

NARRATIVE: CASE EVENT DATE: 20170101
